FAERS Safety Report 8808716 (Version 1)
Quarter: 2012Q4

REPORT INFORMATION
  Report Type: Report from Study
  Country: US (occurrence: US)
  Receive Date: 20120926
  Receipt Date: 20120926
  Transmission Date: 20130627
  Serious: Yes (Other)
  Sender: FDA-Public Use
  Company Number: US-BAYER-2012-098990

PATIENT
  Age: 21 Year
  Sex: Female

DRUGS (1)
  1. DROSPIRENONE\ETHINYL ESTRADIOL [Suspect]
     Dosage: UNK
     Dates: start: 2012

REACTIONS (10)
  - Smear cervix abnormal [None]
  - Asthenia [None]
  - Fatigue [None]
  - Loss of libido [None]
  - Libido decreased [None]
  - Agitation [None]
  - Anger [None]
  - always want to be alone [None]
  - Social avoidant behaviour [None]
  - Suffocation feeling [None]
